FAERS Safety Report 6171689-4 (Version None)
Quarter: 2009Q2

REPORT INFORMATION
  Report Type: 
  Country: None (occurrence: None)
  Receive Date: 20090429
  Receipt Date: 20090423
  Transmission Date: 20091009
  Serious: Yes (Death, Hospitalization)
  Sender: FDA-Public Use
  Company Number: A0780135A

PATIENT
  Age: 70 Year
  Sex: Male

DRUGS (15)
  1. COREG [Suspect]
     Dosage: 25MG TWICE PER DAY
     Route: 048
  2. ADVAIR HFA [Suspect]
     Indication: CHRONIC OBSTRUCTIVE PULMONARY DISEASE
     Dosage: 1PUFF AS REQUIRED
     Route: 055
  3. ZAROXOLYN [Concomitant]
  4. FLOMAX [Concomitant]
  5. LASIX [Concomitant]
  6. WARFARIN [Concomitant]
  7. HUMALOG [Concomitant]
  8. POTASSIUM CHLORIDE [Concomitant]
  9. LANTUS [Concomitant]
  10. LIPITOR [Concomitant]
  11. FOLIC ACID [Concomitant]
  12. UNSPECIFIED MEDICATION [Concomitant]
  13. PREDNISONE [Concomitant]
  14. OXYGEN [Concomitant]
  15. ALBUTEROL [Concomitant]

REACTIONS (2)
  - CHRONIC OBSTRUCTIVE PULMONARY DISEASE [None]
  - RENAL CANCER [None]
